FAERS Safety Report 5318662-3 (Version None)
Quarter: 2007Q2

REPORT INFORMATION
  Report Type: 
  Country: None (occurrence: None)
  Receive Date: 20070508
  Receipt Date: 20070427
  Transmission Date: 20071010
  Serious: Yes (Other)
  Sender: FDA-Public Use
  Company Number: PHNU2007DE01415

PATIENT
  Sex: Female

DRUGS (1)
  1. PROVAS 160 MAXX [Suspect]
     Indication: HYPERTENSION
     Dosage: 160 VAL MG/ 25 HCTZ MG
     Dates: start: 20061201

REACTIONS (3)
  - ARTHRALGIA [None]
  - CHEST DISCOMFORT [None]
  - GOUT [None]
